FAERS Safety Report 7943481-9 (Version None)
Quarter: 2011Q4

REPORT INFORMATION
  Report Type: 
  Country: None (occurrence: None)
  Receive Date: 20111128
  Receipt Date: 20111117
  Transmission Date: 20120403
  Serious: Yes (Other)
  Sender: FDA-Public Use
  Company Number: PHEH2011US009477

PATIENT
  Sex: Male

DRUGS (1)
  1. DIOVAN [Suspect]
     Indication: HYPERTENSION
     Dosage: 160 MG, QD(1 TABLET)
     Route: 048

REACTIONS (4)
  - BACK PAIN [None]
  - CONVULSION [None]
  - ANXIETY [None]
  - CEREBROVASCULAR ACCIDENT [None]
